FAERS Safety Report 20671709 (Version 1)
Quarter: 2022Q2

REPORT INFORMATION
  Report Type: Report from Study
  Country: US (occurrence: US)
  Receive Date: 20220405
  Receipt Date: 20220405
  Transmission Date: 20220721
  Serious: Yes (Other)
  Sender: FDA-Public Use
  Company Number: US-SUN PHARMACEUTICAL INDUSTRIES LTD-2022R1-331278

PATIENT
  Age: 66 Year
  Sex: Female

DRUGS (2)
  1. MOXIFLOXACIN [Suspect]
     Active Substance: MOXIFLOXACIN
     Indication: Neuropathy peripheral
     Dosage: UNK
     Route: 065
  2. DOXYCYCLINE [Suspect]
     Active Substance: DOXYCYCLINE
     Indication: Neuropathy peripheral
     Route: 065

REACTIONS (1)
  - Aortic dissection [Unknown]
